FAERS Safety Report 23226299 (Version 1)
Quarter: 2023Q4

REPORT INFORMATION
  Report Type: Report from Study
  Country: GR (occurrence: GR)
  Receive Date: 20231124
  Receipt Date: 20231124
  Transmission Date: 20240110
  Serious: Yes (Other)
  Sender: FDA-Public Use
  Company Number: GR-Stemline Therapeutics, Inc.-2023ST004553

PATIENT
  Age: 47 Year
  Sex: Female

DRUGS (1)
  1. SELINEXOR [Suspect]
     Active Substance: SELINEXOR
     Indication: Plasma cell myeloma
     Dosage: 80 MG 2X/WEEK
     Route: 048

REACTIONS (1)
  - Drug ineffective [Recovered/Resolved]
